FAERS Safety Report 21940819 (Version 4)
Quarter: 2023Q1

REPORT INFORMATION
  Report Type: Report from Study
  Country: CA (occurrence: CA)
  Receive Date: 20230201
  Receipt Date: 20230321
  Transmission Date: 20230418
  Serious: Yes (Hospitalization, Other)
  Sender: FDA-Public Use
  Company Number: CA-JNJFOC-20230155414

PATIENT
  Age: 17 Year
  Sex: Male
  Weight: 76 kg

DRUGS (2)
  1. REMICADE [Suspect]
     Active Substance: INFLIXIMAB
     Indication: Crohn^s disease
     Dosage: PATIENT RECEIVED LAST INFUSION IN OCT-2022 AND THEN REMICADE DISCONTINUED
     Route: 042
     Dates: start: 20190215, end: 202210
  2. REMICADE [Suspect]
     Active Substance: INFLIXIMAB
     Dosage: REMICADE RESTARTED WITH 700 MG WEEK 6 INDUCTION DOSE AND PATIENT HAD 2 DOSES IN HOSPITAL
     Route: 042

REACTIONS (5)
  - Infection [Not Recovered/Not Resolved]
  - Anorectal infection [Not Recovered/Not Resolved]
  - Anal abscess [Not Recovered/Not Resolved]
  - Crohn^s disease [Unknown]
  - Drug hypersensitivity [Unknown]
